FAERS Safety Report 5239583-0 (Version None)
Quarter: 2007Q1

REPORT INFORMATION
  Report Type: 
  Country: None (occurrence: None)
  Receive Date: 20070216
  Receipt Date: 20070209
  Transmission Date: 20070707
  Serious: Yes (Hospitalization)
  Sender: FDA-Public Use
  Company Number: 2007AP00360

PATIENT
  Age: 10 Month
  Sex: Female
  Weight: 8.2 kg

DRUGS (8)
  1. MEROPEN [Suspect]
     Indication: PNEUMONIA
     Route: 041
     Dates: start: 20060519, end: 20060519
  2. MEROPEN [Suspect]
     Route: 041
     Dates: start: 20060520, end: 20060522
  3. MEROPEN [Suspect]
     Route: 041
     Dates: start: 20060523, end: 20060523
  4. INCREMIN [Suspect]
     Indication: IRON DEFICIENCY ANAEMIA
     Route: 048
     Dates: start: 20060428
  5. BACTA [Suspect]
     Indication: PNEUMONIA
     Dosage: TAKEN TIMES PER WEEK
     Route: 048
     Dates: start: 20060428
  6. ENTERONON-R [Suspect]
     Indication: GASTROINTESTINAL DISORDER
     Route: 048
     Dates: start: 20060514
  7. MUCODYNE SYRUP [Suspect]
     Indication: COUGH
     Route: 048
     Dates: start: 20060517
  8. HALOSPOR [Concomitant]
     Indication: PNEUMONIA
     Route: 041
     Dates: start: 20060518, end: 20060519

REACTIONS (1)
  - HEPATIC FUNCTION ABNORMAL [None]
